FAERS Safety Report 6165350-X (Version None)
Quarter: 2009Q2

REPORT INFORMATION
  Report Type: 
  Country: None (occurrence: None)
  Receive Date: 20090421
  Receipt Date: 20090421
  Transmission Date: 20091009
  Serious: No
  Sender: FDA-Public Use
  Company Number: None

PATIENT
  Age: 48 Year
  Sex: Female
  Weight: 68.0396 kg

DRUGS (1)
  1. NAPRELAN [Suspect]
     Indication: BURSITIS
     Dosage: 1 TABLET ONCE PO
     Route: 048
     Dates: start: 20090417, end: 20090417

REACTIONS (6)
  - ABDOMINAL DISTENSION [None]
  - ABDOMINAL PAIN UPPER [None]
  - ABNORMAL FAECES [None]
  - CONSTIPATION [None]
  - FAECES DISCOLOURED [None]
  - HYPERSOMNIA [None]
